FAERS Safety Report 16422900 (Version 1)
Quarter: 2019Q2

REPORT INFORMATION
  Report Type: Spontaneous
  Country: US (occurrence: US)
  Receive Date: 20190612
  Receipt Date: 20190612
  Transmission Date: 20190711
  Serious: No
  Sender: FDA-Public Use
  Company Number: US-ELI_LILLY_AND_COMPANY-US201906004830

PATIENT
  Sex: Female

DRUGS (3)
  1. TOPAMAX [Concomitant]
     Active Substance: TOPIRAMATE
     Dosage: UNK, UNKNOWN
     Route: 065
  2. LYRICA [Concomitant]
     Active Substance: PREGABALIN
     Dosage: UNK, UNKNOWN
     Route: 065
  3. EMGALITY [Suspect]
     Active Substance: GALCANEZUMAB-GNLM
     Indication: PRODUCT USED FOR UNKNOWN INDICATION
     Dosage: 1 DOSAGE FORM, UNKNOWN
     Route: 065
     Dates: start: 20190524

REACTIONS (2)
  - Hypoaesthesia oral [Not Recovered/Not Resolved]
  - Taste disorder [Not Recovered/Not Resolved]
